FAERS Safety Report 11819672 (Version 1)
Quarter: 2015Q4

REPORT INFORMATION
  Report Type: Spontaneous
  Country: US (occurrence: None)
  Receive Date: 20151209
  Receipt Date: 20151209
  Transmission Date: 20160305
  Serious: Yes (Hospitalization)
  Sender: FDA-Public Use
  Company Number: None

PATIENT
  Age: 63 Year
  Sex: Male
  Weight: 88.5 kg

DRUGS (21)
  1. FE [Concomitant]
     Active Substance: IRON
  2. FENTANYL. [Suspect]
     Active Substance: FENTANYL
     Dosage: 25MCG  IV  ONCE
     Route: 042
  3. ATORVASTATIN [Concomitant]
     Active Substance: ATORVASTATIN
  4. LOVENOX [Concomitant]
     Active Substance: ENOXAPARIN SODIUM
  5. SYNTHROID [Concomitant]
     Active Substance: LEVOTHYROXINE SODIUM
  6. DILAUDID [Suspect]
     Active Substance: HYDROMORPHONE HYDROCHLORIDE
     Indication: PAIN
     Dosage: 1MG Q3HRS PRN IV?RECENT
     Route: 042
  7. KLOR-CON [Concomitant]
     Active Substance: POTASSIUM CHLORIDE
  8. CHRONULAC [Concomitant]
     Active Substance: LACTULOSE
  9. SPIRIVA [Concomitant]
     Active Substance: TIOTROPIUM BROMIDE MONOHYDRATE
  10. VERSED [Suspect]
     Active Substance: MIDAZOLAM HYDROCHLORIDE
     Indication: SEDATIVE THERAPY
     Dosage: 1MG  ONCE  IV?RECENT
     Route: 042
  11. ASA [Concomitant]
     Active Substance: ASPIRIN
  12. HUMALOG [Concomitant]
     Active Substance: INSULIN LISPRO
  13. LIDOCAINE. [Concomitant]
     Active Substance: LIDOCAINE
  14. SYMBICORT [Concomitant]
     Active Substance: BUDESONIDE\FORMOTEROL FUMARATE DIHYDRATE
  15. TESSALON [Concomitant]
     Active Substance: BENZONATATE
  16. COREG [Concomitant]
     Active Substance: CARVEDILOL
  17. FUROSEMID [Concomitant]
     Active Substance: FUROSEMIDE
  18. LEVAQUIN [Concomitant]
     Active Substance: LEVOFLOXACIN
  19. LANTUS [Concomitant]
     Active Substance: INSULIN GLARGINE
  20. PERCOCET [Suspect]
     Active Substance: ACETAMINOPHEN\OXYCODONE HYDROCHLORIDE
     Dosage: 50325MG 1-2 TAB PO Q4H PRN
     Route: 048
  21. MAG OX [Concomitant]
     Active Substance: MAGNESIUM OXIDE

REACTIONS (5)
  - Dyspnoea [None]
  - Respiratory disorder [None]
  - Lethargy [None]
  - Pericarditis constrictive [None]
  - Overdose [None]

NARRATIVE: CASE EVENT DATE: 20150522
